FAERS Safety Report 23216890 (Version 1)
Quarter: 2023Q4

REPORT INFORMATION
  Report Type: Spontaneous
  Country: US (occurrence: US)
  Receive Date: 20231122
  Receipt Date: 20231122
  Transmission Date: 20240109
  Serious: Yes (Hospitalization, Other)
  Sender: FDA-Public Use
  Company Number: US-LUPIN PHARMACEUTICALS INC.-2023-10261

PATIENT
  Age: 23 Year
  Sex: Male

DRUGS (9)
  1. PALIPERIDONE [Interacting]
     Active Substance: PALIPERIDONE
     Indication: Schizoaffective disorder bipolar type
     Dosage: UNK
     Route: 065
  2. QUETIAPINE FUMARATE [Interacting]
     Active Substance: QUETIAPINE FUMARATE
     Indication: Schizoaffective disorder bipolar type
     Dosage: UNK
     Route: 065
  3. LORAZEPAM [Suspect]
     Active Substance: LORAZEPAM
     Indication: Schizoaffective disorder bipolar type
     Dosage: UNK
     Route: 065
  4. LITHIUM [Interacting]
     Active Substance: LITHIUM
     Indication: Schizoaffective disorder bipolar type
     Dosage: UNK
     Route: 065
  5. PROPOFOL [Interacting]
     Active Substance: PROPOFOL
     Indication: Schizoaffective disorder bipolar type
     Dosage: UNK
     Route: 065
  6. KETAMINE [Interacting]
     Active Substance: KETAMINE
     Indication: Schizoaffective disorder bipolar type
     Dosage: UNK
     Route: 065
  7. VALPROATE [Interacting]
     Active Substance: VALPROIC ACID
     Indication: Schizoaffective disorder bipolar type
     Dosage: UNK
     Route: 065
  8. GUANFACINE [Interacting]
     Active Substance: GUANFACINE
     Indication: Schizoaffective disorder bipolar type
     Dosage: UNK
     Route: 065
  9. HALOPERIDOL [Interacting]
     Active Substance: HALOPERIDOL
     Indication: Schizoaffective disorder bipolar type
     Dosage: UNK
     Route: 065

REACTIONS (3)
  - Nephrogenic diabetes insipidus [Recovering/Resolving]
  - Drug interaction [Recovering/Resolving]
  - Off label use [Unknown]
